FAERS Safety Report 20478186 (Version 1)
Quarter: 2022Q1

REPORT INFORMATION
  Report Type: Spontaneous
  Country: US (occurrence: US)
  Receive Date: 20220216
  Receipt Date: 20220216
  Transmission Date: 20220423
  Serious: Yes (Other)
  Sender: FDA-Public Use
  Company Number: US-HETERO-HET2022US00383

PATIENT

DRUGS (1)
  1. RITONAVIR [Suspect]
     Active Substance: RITONAVIR
     Indication: COVID-19
     Dosage: 2 PINK PILLS AND 1 WHITE PILL A DAY
     Route: 065

REACTIONS (12)
  - Oesophagitis [Unknown]
  - Drug hypersensitivity [Unknown]
  - Hot flush [Unknown]
  - Flushing [Unknown]
  - Weight decreased [Unknown]
  - Malaise [Unknown]
  - Erythema [Unknown]
  - Dysgeusia [Unknown]
  - Asthenia [Unknown]
  - Pruritus [Unknown]
  - Gastrooesophageal reflux disease [Unknown]
  - Abdominal pain upper [Unknown]
